FAERS Safety Report 12582781 (Version 2)
Quarter: 2017Q1

REPORT INFORMATION
  Report Type: Report from Study
  Country: US (occurrence: US)
  Receive Date: 20160722
  Receipt Date: 20170130
  Transmission Date: 20170428
  Serious: Yes (Other)
  Sender: FDA-Public Use
  Company Number: US-AMGEN-USASL2016093362

PATIENT
  Age: 66 Year
  Sex: Female

DRUGS (4)
  1. TIMOLOL. [Suspect]
     Active Substance: TIMOLOL
     Indication: VISUAL IMPAIRMENT
     Dosage: UNK
     Route: 065
  2. ENBREL [Suspect]
     Active Substance: ETANERCEPT
     Indication: PRODUCT USED FOR UNKNOWN INDICATION
     Dosage: 50 MG, QWK
     Route: 065
  3. AZOPT [Suspect]
     Active Substance: BRINZOLAMIDE
     Indication: VISUAL IMPAIRMENT
     Dosage: UNK
     Route: 065
  4. PANTOPRAZOLE [Suspect]
     Active Substance: PANTOPRAZOLE SODIUM
     Indication: PRODUCT USED FOR UNKNOWN INDICATION
     Dosage: UNK
     Route: 065

REACTIONS (7)
  - Localised infection [Unknown]
  - Visual impairment [Unknown]
  - Mental disorder [Unknown]
  - Rheumatoid arthritis [Not Recovered/Not Resolved]
  - Foot deformity [Recovered/Resolved]
  - Skin discolouration [Unknown]
  - Pain in extremity [Unknown]
